FAERS Safety Report 10076964 (Version 2)
Quarter: 2014Q3

REPORT INFORMATION
  Report Type: Spontaneous
  Country: DE (occurrence: None)
  Receive Date: 20140410
  Receipt Date: 20140725
  Transmission Date: 20150326
  Serious: Yes (Hospitalization, Other)
  Sender: FDA-Public Use
  Company Number: 2014-19294

PATIENT
  Age: 61 Year
  Sex: Female
  Weight: 72 kg

DRUGS (6)
  1. INSULIN [Concomitant]
     Active Substance: INSULIN NOS
  2. VEGF TRAP-EYE [Suspect]
     Active Substance: AFLIBERCEPT
     Indication: DIABETIC RETINAL OEDEMA
     Dates: start: 20130423, end: 20140225
  3. TROPICAMIDE. [Concomitant]
     Active Substance: TROPICAMIDE
  4. GLYCEROL, IODINATED [Concomitant]
     Active Substance: GLYCEROL, IODINATED
  5. METFORMIN [Concomitant]
     Active Substance: METFORMIN HYDROCHLORIDE
  6. PROPARACAINE HYDROCHLORIDE (PROXYMETACAINE HYDROCHLORIDE) [Concomitant]

REACTIONS (1)
  - Peritonitis [None]

NARRATIVE: CASE EVENT DATE: 20140301
